FAERS Safety Report 7114177-0 (Version None)
Quarter: 2010Q4

REPORT INFORMATION
  Report Type: 
  Country: None (occurrence: None)
  Receive Date: 20101119
  Receipt Date: 20101116
  Transmission Date: 20110411
  Serious: Yes (Hospitalization)
  Sender: FDA-Public Use
  Company Number: US-PERRIGO-10US014196

PATIENT
  Sex: Female
  Weight: 57.596 kg

DRUGS (4)
  1. NICOTINE 4 MG MINT 873 [Suspect]
     Indication: SMOKING CESSATION THERAPY
     Dosage: 4 MG, EVERY 2 HOURS
     Route: 002
     Dates: start: 20101015, end: 20101021
  2. HYZAAR [Concomitant]
     Indication: HYPERTENSION
     Dosage: UNKNOWN, DAILY
     Route: 048
     Dates: start: 20051001
  3. ASPIRIN [Concomitant]
     Indication: ROUTINE HEALTH MAINTENANCE
     Dosage: 81 MG, QD
     Route: 048
     Dates: start: 20051001
  4. PREMARIN [Concomitant]
     Indication: HORMONE REPLACEMENT THERAPY
     Dosage: UNKNOWN, DAILY
     Route: 048
     Dates: start: 19891001

REACTIONS (5)
  - CHEST PAIN [None]
  - DYSPEPSIA [None]
  - HEADACHE [None]
  - PRODUCT QUALITY ISSUE [None]
  - STRESS [None]
